FAERS Safety Report 23831203 (Version 2)
Quarter: 2024Q3

REPORT INFORMATION
  Report Type: Spontaneous
  Country: CA (occurrence: CA)
  Receive Date: 20240508
  Receipt Date: 20240701
  Transmission Date: 20241017
  Serious: Yes (Other)
  Sender: PFIZER
  Company Number: CA-PFIZER INC-202400101626

PATIENT
  Age: 7 Year
  Sex: Female

DRUGS (1)
  1. SOMATROPIN [Suspect]
     Active Substance: SOMATROPIN
     Indication: Short stature
     Dosage: 1 DF 6XWEEK (0.6MG/DAY ALTERNATING WITH 0.8MG/DAY)
     Route: 058
     Dates: start: 2023

REACTIONS (1)
  - Sleep apnoea syndrome [Unknown]
